FAERS Safety Report 10036045 (Version 1)
Quarter: 2014Q1

REPORT INFORMATION
  Report Type: Spontaneous
  Country: US (occurrence: US)
  Receive Date: 20140325
  Receipt Date: 20140325
  Transmission Date: 20141002
  Serious: Yes (Hospitalization)
  Sender: FDA-Public Use
  Company Number: US-CUBIST PHARMACEUTICAL, INC.-2014CBST000448

PATIENT
  Sex: 0

DRUGS (3)
  1. CUBICIN [Suspect]
     Indication: ENTEROCOCCAL INFECTION
     Dosage: 6 MG/KG, QD
     Route: 042
  2. CUBICIN [Suspect]
     Indication: FEBRILE NEUTROPENIA
  3. CUBICIN [Suspect]
     Indication: OFF LABEL USE

REACTIONS (1)
  - Enterococcal infection [Recovered/Resolved]
